FAERS Safety Report 9686333 (Version 1)
Quarter: 2013Q4

REPORT INFORMATION
  Report Type: Spontaneous
  Country: IT (occurrence: None)
  Receive Date: 20131108
  Receipt Date: 20131108
  Transmission Date: 20140711
  Serious: Yes (Hospitalization)
  Sender: FDA-Public Use
  Company Number: DSM-2013-01030

PATIENT
  Age: 79 Year
  Sex: Female

DRUGS (7)
  1. PLAUNAZIDE [Suspect]
     Indication: HYPERTENSION
     Dosage: 40/12.5 MG (1 IN 1 D), ORAL
     Route: 048
     Dates: start: 20120501
  2. DAPAROX [Suspect]
     Indication: PRODUCT USED FOR UNKNOWN INDICATION
     Dosage: 20 MG (20 MG, 1 IN 1 D), UNKNOWN
     Dates: start: 20130601
  3. COUMADIN (WARFARIN SODIUM) (WARFARIN SODIUM) [Concomitant]
  4. LANOXIN (DIGOXIN) [Concomitant]
  5. OMEPRAZOLE [Concomitant]
  6. LOBIVON (NEBIVOLOL HYDROCHLORIDE) (NEBIVOLOL HYDROCHLORIDE) [Concomitant]
  7. NORVASC (AMLODIPINE BESILATE) [Concomitant]

REACTIONS (5)
  - Agitation [None]
  - Confusional state [None]
  - Hyponatraemia [None]
  - Drug interaction [None]
  - Dizziness [None]
